FAERS Safety Report 6618400-8 (Version None)
Quarter: 2010Q1

REPORT INFORMATION
  Report Type: 
  Country: None (occurrence: None)
  Receive Date: 20100308
  Receipt Date: 20100223
  Transmission Date: 20100710
  Serious: No
  Sender: FDA-Public Use
  Company Number: B0632067A

PATIENT
  Sex: Female

DRUGS (11)
  1. PAXIL [Suspect]
     Indication: DEPRESSION
     Route: 048
  2. AMARYL [Concomitant]
     Dosage: 3MG PER DAY
     Route: 048
  3. GRAMALIL [Concomitant]
     Dosage: 75MG PER DAY
     Route: 048
  4. ASPIRIN [Concomitant]
     Dosage: 100MG PER DAY
     Route: 048
  5. ARICEPT [Concomitant]
     Dosage: 3MG PER DAY
     Route: 048
  6. LULLAN [Concomitant]
     Dosage: 4MG PER DAY
     Route: 048
  7. ALOSENN [Concomitant]
     Dosage: .5MG PER DAY
     Route: 048
  8. LIVALO [Concomitant]
     Dosage: 1MG PER DAY
     Route: 048
  9. AMOBAN [Concomitant]
     Dosage: .75MG PER DAY
     Route: 048
  10. MAGLAX [Concomitant]
     Route: 048
  11. MAGLAX [Concomitant]
     Dosage: 660MG PER DAY
     Route: 048

REACTIONS (2)
  - DECREASED APPETITE [None]
  - HYPERHIDROSIS [None]
